FAERS Safety Report 7364047-8 (Version None)
Quarter: 2011Q1

REPORT INFORMATION
  Report Type: 
  Country: None (occurrence: None)
  Receive Date: 20110321
  Receipt Date: 20110308
  Transmission Date: 20110831
  Serious: Yes (Other)
  Sender: FDA-Public Use
  Company Number: PHHY2011US14320

PATIENT
  Sex: Female

DRUGS (6)
  1. GILENYA [Suspect]
     Indication: MULTIPLE SCLEROSIS
     Dosage: 0.5 MG DAILY
     Route: 048
     Dates: start: 20110125, end: 20110208
  2. BACLOFEN [Concomitant]
     Indication: MUSCLE SPASMS
     Dosage: 1 DF, BID
     Route: 048
     Dates: start: 20100902
  3. MULTI-VITAMIN [Concomitant]
     Dosage: 1 DF, DAILY
     Route: 048
     Dates: start: 20090101
  4. IBUPROFEN [Concomitant]
     Indication: INFLAMMATION
     Dosage: UNK, PRN
     Route: 048
     Dates: start: 20090101
  5. VITAMIN D [Concomitant]
     Dosage: 5000 IU, DAILY
     Route: 048
     Dates: start: 20100101
  6. ACETAMINOPHEN [Concomitant]
     Indication: PAIN
     Dosage: UNK, PRN
     Route: 048
     Dates: start: 20090101

REACTIONS (12)
  - BURNING SENSATION [None]
  - HAEMATOCRIT INCREASED [None]
  - INFLUENZA LIKE ILLNESS [None]
  - PAIN IN EXTREMITY [None]
  - BACK PAIN [None]
  - C-REACTIVE PROTEIN INCREASED [None]
  - NAUSEA [None]
  - VOMITING [None]
  - HEADACHE [None]
  - WHITE BLOOD CELL COUNT INCREASED [None]
  - ARTHRALGIA [None]
  - DIZZINESS [None]
